FAERS Safety Report 4853676-9 (Version None)
Quarter: 2005Q4

REPORT INFORMATION
  Report Type: 
  Country: None (occurrence: None)
  Receive Date: 20051212
  Receipt Date: 20051129
  Transmission Date: 20060501
  Serious: Yes (Other)
  Sender: FDA-Public Use
  Company Number: GXKR2005JP02016

PATIENT
  Age: 62 Year
  Sex: Male

DRUGS (1)
  1. RIFAMPICIN [Suspect]
     Indication: TUBERCULOSIS
     Dosage: ORAL
     Route: 048

REACTIONS (1)
  - AUTOIMMUNE THYROIDITIS [None]
